FAERS Safety Report 9092991 (Version 1)
Quarter: 2013Q1

REPORT INFORMATION
  Report Type: Spontaneous
  Country: US (occurrence: None)
  Receive Date: 20130213
  Receipt Date: 20130213
  Transmission Date: 20140127
  Serious: Yes (Life-Threatening, Other)
  Sender: FDA-Public Use
  Company Number: None

PATIENT
  Age: 14 Year
  Sex: Female
  Weight: 54.43 kg

DRUGS (2)
  1. MICROGESTIN FE, 1/20, WATSON [Suspect]
     Indication: MENOPAUSAL SYMPTOMS
     Dates: start: 20121219, end: 20130122
  2. CITALOPRAM [Concomitant]

REACTIONS (5)
  - Crying [None]
  - Intentional self-injury [None]
  - Laceration [None]
  - Suicidal ideation [None]
  - Depression [None]
